FAERS Safety Report 8074210-9 (Version None)
Quarter: 2012Q1

REPORT INFORMATION
  Report Type: 
  Country: None (occurrence: None)
  Receive Date: 20120126
  Receipt Date: 20120121
  Transmission Date: 20120608
  Serious: Yes (Hospitalization)
  Sender: FDA-Public Use
  Company Number: US-PFIZER INC-2011281292

PATIENT
  Age: 66 Year
  Sex: Female
  Weight: 64.9 kg

DRUGS (7)
  1. ZOLINZA [Suspect]
     Indication: ACUTE MYELOID LEUKAEMIA
     Dosage: 400 MG, ON DAYS 1-9
     Route: 048
     Dates: start: 20111004, end: 20111012
  2. MYLOTARG [Suspect]
     Indication: ACUTE MYELOID LEUKAEMIA
     Dosage: 3 MG/M2, ON DAYS 4 AND 8
     Route: 042
     Dates: start: 20111004, end: 20111011
  3. HYDROCODONE [Concomitant]
  4. LIPITOR [Concomitant]
  5. VIDAZA [Suspect]
     Indication: ACUTE MYELOID LEUKAEMIA
     Dosage: 75 MG/M2, ON DAYS 1-7
     Dates: start: 20111004, end: 20111010
  6. BENADRYL [Concomitant]
  7. LEVOTHYROXINE SODIUM [Concomitant]

REACTIONS (6)
  - CARDIAC FAILURE [None]
  - FEBRILE NEUTROPENIA [None]
  - WHITE BLOOD CELL COUNT DECREASED [None]
  - PNEUMONITIS [None]
  - PLEURAL EFFUSION [None]
  - INJECTION SITE REACTION [None]
